FAERS Safety Report 8618068 (Version 2)
Quarter: 2012Q4

REPORT INFORMATION
  Report Type: 
  Country: US (occurrence: US)
  Receive Date: 20120615
  Receipt Date: 20121210
  Transmission Date: 20130627
  Serious: Yes (Other)
  Sender: FDA-Public Use
  Company Number: US-US-EMD SERONO, INC.-7139273

PATIENT
  Sex: Female
  Weight: 81 kg

DRUGS (9)
  1. REBIF [Suspect]
     Indication: PRODUCT USED FOR UNKNOWN INDICATION
     Route: 058
     Dates: start: 20120503
  2. REBIF [Suspect]
     Route: 058
  3. IBUPROFEN [Concomitant]
     Indication: PREMEDICATION
  4. HYDROCODONE [Concomitant]
     Indication: PRODUCT USED FOR UNKNOWN INDICATION
  5. UNSPECIFIED INHALERS [Concomitant]
     Indication: CHRONIC OBSTRUCTIVE PULMONARY DISEASE
  6. ATENOLOL [Concomitant]
     Indication: HYPERTENSION
  7. NIASPAN [Concomitant]
     Indication: BLOOD CHOLESTEROL INCREASED
  8. INSULIN [Concomitant]
     Indication: TYPE 1 DIABETES MELLITUS
  9. LEVOTHYROXINE [Concomitant]
     Indication: HYPOTHYROIDISM

REACTIONS (5)
  - Type 2 diabetes mellitus [Recovered/Resolved]
  - Amnesia [Not Recovered/Not Resolved]
  - Dysphemia [Not Recovered/Not Resolved]
  - Fatigue [Not Recovered/Not Resolved]
  - Headache [Not Recovered/Not Resolved]
